FAERS Safety Report 12552677 (Version 2)
Quarter: 2016Q3

REPORT INFORMATION
  Report Type: Spontaneous
  Country: JP (occurrence: JP)
  Receive Date: 20160713
  Receipt Date: 20160719
  Transmission Date: 20161109
  Serious: Yes (Other)
  Sender: FDA-Public Use
  Company Number: JP-PFIZER INC-2016339088

PATIENT
  Age: 73 Year
  Sex: Female

DRUGS (2)
  1. CELECOX [Suspect]
     Active Substance: CELECOXIB
     Dosage: UNK
     Dates: start: 201407, end: 201407
  2. GASTER [Suspect]
     Active Substance: FAMOTIDINE
     Dosage: UNK
     Dates: start: 201407, end: 201407

REACTIONS (1)
  - Fixed drug eruption [Unknown]
